FAERS Safety Report 8321374 (Version 2)
Quarter: 2013Q4

REPORT INFORMATION
  Report Type: Spontaneous
  Country: US (occurrence: US)
  Receive Date: 20120104
  Receipt Date: 20131104
  Transmission Date: 20140711
  Serious: Yes (Hospitalization)
  Sender: FDA-Public Use
  Company Number: US-GLAXOSMITHKLINE-A0934676A

PATIENT
  Age: 82 Year
  Sex: Male
  Weight: 97.7 kg

DRUGS (2)
  1. AVANDAMET [Suspect]
     Indication: DIABETES MELLITUS
     Route: 048
     Dates: start: 200304, end: 200601
  2. AVANDIA [Suspect]
     Indication: DIABETES MELLITUS
     Route: 048
     Dates: start: 200401, end: 200705

REACTIONS (6)
  - Aortic stenosis [Unknown]
  - Cardiac failure congestive [Unknown]
  - Angina unstable [Unknown]
  - Coronary artery disease [Unknown]
  - Aortic valve replacement [Unknown]
  - Cardiac disorder [Unknown]
